FAERS Safety Report 24095103 (Version 1)
Quarter: 2024Q3

REPORT INFORMATION
  Report Type: Report from Study
  Country: US (occurrence: None)
  Receive Date: 20240716
  Receipt Date: 20240716
  Transmission Date: 20241017
  Serious: Yes (Other)
  Sender: ASTRAZENECA
  Company Number: 2019SF63460

PATIENT
  Sex: Male

DRUGS (9)
  1. FASENRA [Suspect]
     Active Substance: BENRALIZUMAB
     Indication: Asthma
     Route: 058
  2. ESOMEPRAZOLE [Concomitant]
     Active Substance: ESOMEPRAZOLE
     Dosage: 40.0MG UNKNOWN
  3. FLUTICASONE [Concomitant]
     Active Substance: FLUTICASONE
  4. ZYRTEC ALLER [Concomitant]
     Dosage: 10.0MG UNKNOWN
  5. ATORVASTATIN [Concomitant]
     Active Substance: ATORVASTATIN
     Dosage: 10.0MG UNKNOWN
  6. BENICAR [Concomitant]
     Active Substance: OLMESARTAN MEDOXOMIL
     Dosage: 40.0MG UNKNOWN
  7. BROVANA [Concomitant]
     Active Substance: ARFORMOTEROL TARTRATE
     Dosage: 15 MCG/2 ML
  8. BUDESONIDE [Concomitant]
     Active Substance: BUDESONIDE
     Dosage: 3.0MG UNKNOWN
  9. SPIRIVA HAND [Concomitant]
     Dosage: 18.0UG UNKNOWN

REACTIONS (1)
  - Neoplasm malignant [Not Recovered/Not Resolved]
